FAERS Safety Report 6756620-2 (Version None)
Quarter: 2010Q2

REPORT INFORMATION
  Report Type: 
  Country: None (occurrence: None)
  Receive Date: 20100603
  Receipt Date: 20100603
  Transmission Date: 20101027
  Serious: Yes (Hospitalization)
  Sender: FDA-Public Use
  Company Number: None

PATIENT
  Age: 10 Year
  Sex: Male
  Weight: 30 kg

DRUGS (1)
  1. CARIMUNE NF [Suspect]
     Indication: IMMUNODEFICIENCY COMMON VARIABLE
     Dosage: 18 GRAMS X1 IV OVER 5 HOURS, 45 MIN
     Route: 042
     Dates: start: 20100504

REACTIONS (1)
  - MENINGITIS ASEPTIC [None]
